FAERS Safety Report 18485242 (Version 1)
Quarter: 2020Q4

REPORT INFORMATION
  Report Type: Spontaneous
  Country: TR (occurrence: TR)
  Receive Date: 20201110
  Receipt Date: 20201110
  Transmission Date: 20210114
  Serious: Yes (Hospitalization, Other)
  Sender: FDA-Public Use
  Company Number: TR-GLAXOSMITHKLINE-TR2020GSK222002

PATIENT
  Age: 32 Year
  Sex: Female

DRUGS (1)
  1. LAMOTRIGINE. [Suspect]
     Active Substance: LAMOTRIGINE
     Indication: BIPOLAR DISORDER
     Dosage: UNK

REACTIONS (16)
  - Genital erosion [Recovered/Resolved]
  - Pyrexia [Recovered/Resolved]
  - Blister [Recovered/Resolved]
  - Dermatitis bullous [Recovered/Resolved]
  - Eyelid oedema [Recovered/Resolved]
  - Palmar erythema [Recovered/Resolved]
  - Conjunctival hyperaemia [Recovered/Resolved]
  - Oral mucosa erosion [Recovered/Resolved]
  - Toxic epidermal necrolysis [Recovered/Resolved]
  - Rash papular [Recovered/Resolved]
  - Skin disorder [Recovered/Resolved]
  - Skin plaque [Recovered/Resolved]
  - Erythema of eyelid [Recovered/Resolved]
  - Rash [Recovered/Resolved]
  - Target skin lesion [Recovered/Resolved]
  - Nikolsky^s sign [Recovered/Resolved]
